FAERS Safety Report 6825385-8 (Version None)
Quarter: 2010Q3

REPORT INFORMATION
  Report Type: 
  Country: None (occurrence: None)
  Receive Date: 20100708
  Receipt Date: 20070220
  Transmission Date: 20110219
  Serious: No
  Sender: FDA-Public Use
  Company Number: US-PFIZER INC-2007001316

PATIENT
  Age: 64 Year
  Sex: Male
  Weight: 99.79 kg

DRUGS (7)
  1. CHANTIX [Suspect]
     Indication: SMOKING CESSATION THERAPY
     Dates: start: 20061128, end: 20061227
  2. CHONDROITIN [Concomitant]
  3. GLUCOSAMINE [Concomitant]
  4. SAW PALMETTO [Concomitant]
  5. CITALOPRAM HYDROBROMIDE [Concomitant]
  6. HYDROCHLOROTHIAZIDE [Concomitant]
     Indication: HYPERTENSION
  7. VYTORIN [Concomitant]
     Indication: BLOOD CHOLESTEROL INCREASED

REACTIONS (1)
  - RASH [None]
